FAERS Safety Report 10048400 (Version 1)
Quarter: 2014Q1

REPORT INFORMATION
  Report Type: Spontaneous
  Country: US (occurrence: US)
  Receive Date: 20140331
  Receipt Date: 20140331
  Transmission Date: 20141002
  Serious: No
  Sender: FDA-Public Use
  Company Number: US-BAYER-2014-045772

PATIENT
  Age: 51 Year
  Sex: Male
  Weight: 63.49 kg

DRUGS (3)
  1. ALEVE CAPLET [Suspect]
     Indication: PAIN
     Dosage: 1 DF, QD
     Route: 048
  2. ALEVE GELCAPS [Suspect]
     Indication: PAIN
     Dosage: 1 DF, QD
     Route: 048
  3. DILANTIN [Concomitant]
     Dosage: UNK

REACTIONS (1)
  - Incorrect drug administration duration [None]
